FAERS Safety Report 5733470-7 (Version None)
Quarter: 2008Q2

REPORT INFORMATION
  Report Type: 
  Country: None (occurrence: None)
  Receive Date: 20080509
  Receipt Date: 20080506
  Transmission Date: 20081010
  Serious: Yes (Hospitalization)
  Sender: FDA-Public Use
  Company Number: DE-MERCK-0805DEU00020

PATIENT
  Age: 72 Year
  Sex: Male

DRUGS (3)
  1. VYTORIN [Suspect]
     Indication: HYPERCHOLESTEROLAEMIA
     Route: 048
     Dates: start: 20060301
  2. ASPIRIN [Concomitant]
     Route: 048
  3. CORDINATE PLUS [Concomitant]
     Route: 048

REACTIONS (4)
  - MUSCULAR WEAKNESS [None]
  - MYALGIA [None]
  - SPINAL COLUMN STENOSIS [None]
  - WRONG TECHNIQUE IN DRUG USAGE PROCESS [None]
